FAERS Safety Report 7628474-3 (Version None)
Quarter: 2011Q3

REPORT INFORMATION
  Report Type: 
  Country: None (occurrence: None)
  Receive Date: 20110721
  Receipt Date: 20110721
  Transmission Date: 20111222
  Serious: Yes (Hospitalization)
  Sender: FDA-Public Use
  Company Number: None

PATIENT
  Sex: Male
  Weight: 54.1 kg

DRUGS (4)
  1. METHOTREXATE [Suspect]
     Dosage: 165 MG
  2. MERCAPTOPURINE [Suspect]
     Dosage: 4500 MG
  3. VINCRISTINE SULFATE [Suspect]
     Dosage: 3 MG
  4. PREDNISONE [Suspect]
     Dosage: 325 MG

REACTIONS (10)
  - RESPIRATORY SYNCYTIAL VIRUS TEST POSITIVE [None]
  - ASTHENIA [None]
  - DEPRESSED LEVEL OF CONSCIOUSNESS [None]
  - OEDEMA [None]
  - APNOEIC ATTACK [None]
  - CONVULSION [None]
  - HYPOAESTHESIA [None]
  - PNEUMONIA [None]
  - GAIT DISTURBANCE [None]
  - TOXICITY TO VARIOUS AGENTS [None]
